FAERS Safety Report 9919174 (Version 4)
Quarter: 2014Q2

REPORT INFORMATION
  Report Type: Report from Study
  Country: US (occurrence: US)
  Receive Date: 20140224
  Receipt Date: 20140429
  Transmission Date: 20141212
  Serious: Yes (Other)
  Sender: FDA-Public Use
  Company Number: US-ASTELLAS-2014US001733

PATIENT
  Age: 49 Year
  Sex: Female

DRUGS (6)
  1. ERLOTINIB [Suspect]
     Indication: LUNG NEOPLASM MALIGNANT
     Route: 048
     Dates: start: 20130702
  2. ERLOTINIB [Suspect]
     Route: 048
     Dates: start: 201308
  3. ERLOTINIB [Suspect]
     Route: 048
     Dates: end: 20140205
  4. LOSARTAN                           /01121602/ [Concomitant]
     Indication: HYPERTENSION
     Route: 065
  5. LEVOTHYROXINE                      /00068002/ [Concomitant]
     Indication: THYROID DISORDER
     Route: 065
  6. CELEXA                             /00582602/ [Concomitant]
     Indication: PRODUCT USED FOR UNKNOWN INDICATION
     Route: 065

REACTIONS (3)
  - Gallbladder disorder [Unknown]
  - Malignant neoplasm progression [Unknown]
  - Nausea [Recovered/Resolved]
